FAERS Safety Report 19438631 (Version 2)
Quarter: 2021Q3

REPORT INFORMATION
  Report Type: Report from Study
  Country: US (occurrence: US)
  Receive Date: 20210618
  Receipt Date: 20210821
  Transmission Date: 20211014
  Serious: No
  Sender: FDA-Public Use
  Company Number: NVSC2021US127952

PATIENT
  Sex: Female

DRUGS (2)
  1. COSENTYX [Suspect]
     Active Substance: SECUKINUMAB
     Indication: PSORIATIC ARTHROPATHY
  2. COSENTYX [Suspect]
     Active Substance: SECUKINUMAB
     Indication: PSORIASIS
     Dosage: 300 MG, QW (BENEATH THE SKIN, USUALLY VIA INJECTION)
     Route: 058

REACTIONS (5)
  - Diarrhoea [Unknown]
  - Dehydration [Unknown]
  - Pruritus [Unknown]
  - Hypersensitivity [Unknown]
  - Rash [Unknown]
